FAERS Safety Report 7482611-2 (Version None)
Quarter: 2011Q2

REPORT INFORMATION
  Report Type: 
  Country: None (occurrence: None)
  Receive Date: 20110516
  Receipt Date: 20110427
  Transmission Date: 20111010
  Serious: No
  Sender: FDA-Public Use
  Company Number: US-B.I. PHARMACEUTICALS,INC./RIDGEFIELD-2011-BP-02566BP

PATIENT
  Sex: Female

DRUGS (15)
  1. CHANTIX [Concomitant]
     Dosage: 2 MG
     Route: 048
  2. COREG [Concomitant]
     Dosage: 50 MG
     Route: 048
  3. OTC ALLERGY MED [Concomitant]
     Dosage: 25 MG
     Route: 048
  4. CLONAZEPAM [Concomitant]
     Dosage: 1 MG
     Route: 048
  5. HYDROCHLOROTHIAZIDE [Concomitant]
     Dosage: 25 MG
     Route: 048
  6. FISH OIL [Concomitant]
     Dosage: 2000 G
     Route: 048
  7. ADVAIR DISKUS 100/50 [Concomitant]
     Route: 055
  8. LISINOPRIL [Concomitant]
     Dosage: 20 MG
     Route: 048
  9. SPIRIVA [Suspect]
     Indication: CHRONIC OBSTRUCTIVE PULMONARY DISEASE
     Dosage: 18 MCG
     Route: 055
  10. ZOCOR [Concomitant]
     Dosage: 20 MG
     Route: 048
  11. ASPIRIN [Concomitant]
     Dosage: 81 MG
     Route: 048
  12. PROZAC [Concomitant]
     Dosage: 20 MG
     Route: 048
  13. MULTI-VITAMIN [Concomitant]
     Dosage: 1000 MG
     Route: 048
  14. PRILOSEC [Concomitant]
     Dosage: 40 MG
     Route: 048
  15. KEPPRA [Concomitant]
     Dosage: 5000 MG
     Route: 048

REACTIONS (1)
  - DRUG INEFFECTIVE [None]
